FAERS Safety Report 4492484-8 (Version None)
Quarter: 2004Q4

REPORT INFORMATION
  Report Type: 
  Country: None (occurrence: None)
  Receive Date: 20041029
  Receipt Date: 20041016
  Transmission Date: 20050328
  Serious: Yes (Other)
  Sender: FDA-Public Use
  Company Number: 2004079045

PATIENT
  Age: 60 Year
  Sex: Female
  Weight: 75.2971 kg

DRUGS (3)
  1. LIPITOR [Suspect]
     Indication: BLOOD CHOLESTEROL INCREASED
     Dosage: 10 MG (10 MG, 1 IN 1 D), ORAL
     Route: 048
  2. CITALOPRAM HYDROBROMIDE [Concomitant]
  3. BUPROPION HYDROCHLORIDE [Concomitant]

REACTIONS (7)
  - ARTHRALGIA [None]
  - BEDRIDDEN [None]
  - DYSGEUSIA [None]
  - EATING DISORDER [None]
  - IMPAIRED WORK ABILITY [None]
  - INTERVERTEBRAL DISC PROTRUSION [None]
  - PAIN [None]
